FAERS Safety Report 6780977-X (Version None)
Quarter: 2010Q2

REPORT INFORMATION
  Report Type: 
  Country: None (occurrence: None)
  Receive Date: 20100621
  Receipt Date: 20100608
  Transmission Date: 20101027
  Serious: Yes (Hospitalization, Other)
  Sender: FDA-Public Use
  Company Number: TW-ELI_LILLY_AND_COMPANY-TW201006002836

PATIENT
  Sex: Male

DRUGS (1)
  1. FORTEO [Suspect]
     Dosage: UNK UNK, DAILY (1/D)
     Route: 058
     Dates: start: 20100226

REACTIONS (2)
  - MULTIPLE MYELOMA [None]
  - PYREXIA [None]
